FAERS Safety Report 9778545 (Version 1)
Quarter: 2013Q4

REPORT INFORMATION
  Report Type: Spontaneous
  Country: US (occurrence: None)
  Receive Date: 20131219
  Receipt Date: 20131219
  Transmission Date: 20140711
  Serious: Yes (Hospitalization)
  Sender: FDA-Public Use
  Company Number: SYM-2013-05415

PATIENT
  Age: 75 Year
  Sex: Female

DRUGS (2)
  1. XENAZINE [Suspect]
     Indication: COORDINATION ABNORMAL
     Route: 048
     Dates: start: 20100510
  2. XENAZINE [Suspect]
     Indication: OFF LABEL USE
     Route: 048
     Dates: start: 20100510

REACTIONS (4)
  - Off label use [None]
  - Fall [None]
  - Bronchitis [None]
  - Influenza [None]
